FAERS Safety Report 14237208 (Version 2)
Quarter: 2018Q1

REPORT INFORMATION
  Report Type: Report from Study
  Country: SK (occurrence: SK)
  Receive Date: 20171129
  Receipt Date: 20180308
  Transmission Date: 20180508
  Serious: No
  Sender: FDA-Public Use
  Company Number: SK-JNJFOC-20171129328

PATIENT
  Age: 27 Year
  Sex: Female

DRUGS (1)
  1. STELARA [Suspect]
     Active Substance: USTEKINUMAB
     Indication: PSORIASIS
     Route: 058
     Dates: start: 20110415

REACTIONS (1)
  - Lipoma [Unknown]

NARRATIVE: CASE EVENT DATE: 20170717
